FAERS Safety Report 12491387 (Version 1)
Quarter: 2016Q2

REPORT INFORMATION
  Report Type: Spontaneous
  Country: None (occurrence: None)
  Receive Date: 20160622
  Receipt Date: 20160622
  Transmission Date: 20160815
  Serious: Yes (Other)
  Sender: FDA-Public Use
  Company Number: None

PATIENT

DRUGS (1)
  1. THALODOMIDE [Suspect]
     Active Substance: THALIDOMIDE

REACTIONS (3)
  - Peripheral swelling [None]
  - Blister [None]
  - Skin irritation [None]

NARRATIVE: CASE EVENT DATE: 20160615
